FAERS Safety Report 7917898-2 (Version None)
Quarter: 2011Q4

REPORT INFORMATION
  Report Type: 
  Country: None (occurrence: None)
  Receive Date: 20111116
  Receipt Date: 20111108
  Transmission Date: 20120403
  Serious: Yes (Hospitalization, Other)
  Sender: FDA-Public Use
  Company Number: PHEH2011US008949

PATIENT
  Sex: Female

DRUGS (5)
  1. AMITRIPTYLINE HCL [Concomitant]
     Dosage: UNK UKN, UNK
  2. KEPPRA [Concomitant]
     Dosage: UNK UKN, UNK
  3. ATIVAN [Concomitant]
     Dosage: UNK UKN, UNK
  4. GILENYA [Suspect]
     Indication: MULTIPLE SCLEROSIS
     Dosage: 0.5 MG, QD
     Route: 048
     Dates: start: 20111102
  5. LEXAPRO [Concomitant]
     Dosage: UNK UKN, UNK

REACTIONS (6)
  - FATIGUE [None]
  - CONVULSION [None]
  - STARING [None]
  - UNRESPONSIVE TO STIMULI [None]
  - RESPIRATORY ARREST [None]
  - HYPERTENSION [None]
